FAERS Safety Report 25094730 (Version 1)
Quarter: 2025Q1

REPORT INFORMATION
  Report Type: Spontaneous
  Country: US (occurrence: US)
  Receive Date: 20250319
  Receipt Date: 20250319
  Transmission Date: 20250409
  Serious: Yes (Hospitalization, Other)
  Sender: IPSEN BIOPHARMACEUTICALS, INC.
  Company Number: US-IPSEN Group, Research and Development-2025-05990

PATIENT
  Age: 60 Year
  Sex: Female
  Weight: 88 kg

DRUGS (8)
  1. TAZVERIK [Suspect]
     Active Substance: TAZEMETOSTAT HYDROBROMIDE
     Indication: Angioimmunoblastic T-cell lymphoma
     Route: 048
     Dates: start: 20250203
  2. TAZVERIK [Suspect]
     Active Substance: TAZEMETOSTAT HYDROBROMIDE
     Indication: Off label use
  3. ACYCLOVIR [Concomitant]
     Active Substance: ACYCLOVIR
  4. CEFUROXIME [Concomitant]
     Active Substance: CEFUROXIME
  5. FOLIC ACID [Concomitant]
     Active Substance: FOLIC ACID
  6. MAGNESIUM [Concomitant]
     Active Substance: MAGNESIUM
  7. PANTOPRAZOLE [Concomitant]
     Active Substance: PANTOPRAZOLE
  8. PREDNISONE [Concomitant]
     Active Substance: PREDNISONE

REACTIONS (2)
  - Pneumonia [Recovering/Resolving]
  - Off label use [Unknown]

NARRATIVE: CASE EVENT DATE: 20250101
